FAERS Safety Report 9206373 (Version 1)
Quarter: 2013Q2

REPORT INFORMATION
  Report Type: Spontaneous
  Country: US (occurrence: None)
  Receive Date: 20130401
  Receipt Date: 20130401
  Transmission Date: 20140414
  Serious: Yes (Other)
  Sender: FDA-Public Use
  Company Number: None

PATIENT
  Age: 53 Year
  Sex: Female

DRUGS (2)
  1. PEGASYS [Suspect]
     Dates: start: 20130315, end: 20130326
  2. RIBAVIRIN [Suspect]
     Route: 048
     Dates: start: 20130315, end: 20130326

REACTIONS (7)
  - Body temperature increased [None]
  - Heart rate increased [None]
  - Neck pain [None]
  - Migraine [None]
  - Chills [None]
  - Diarrhoea [None]
  - Rash [None]
